FAERS Safety Report 12202201 (Version 1)
Quarter: 2016Q1

REPORT INFORMATION
  Report Type: Spontaneous
  Country: IN (occurrence: IN)
  Receive Date: 20160322
  Receipt Date: 20160322
  Transmission Date: 20160526
  Serious: Yes (Hospitalization, Other)
  Sender: FDA-Public Use
  Company Number: IN-SHENZHEN TECHDOW PHARMACEUTICAL CO. LTD-IN-2016TEC0000013

PATIENT

DRUGS (2)
  1. HEPARIN SODIUM INJECTION USP, PRESERVATIVE FREE [Suspect]
     Active Substance: HEPARIN SODIUM
     Indication: CATHETER SITE PRURITUS
     Dosage: UNK
     Route: 061
  2. HEPARIN SODIUM INJECTION USP, PRESERVATIVE FREE [Suspect]
     Active Substance: HEPARIN SODIUM
     Indication: CATHETER SITE PAIN

REACTIONS (7)
  - Rash erythematous [Unknown]
  - Acute kidney injury [Unknown]
  - Generalised erythema [Unknown]
  - Blister [Unknown]
  - Oliguria [Unknown]
  - Dermatitis contact [Unknown]
  - Anuria [Unknown]
